FAERS Safety Report 11338022 (Version 1)
Quarter: 2015Q3

REPORT INFORMATION
  Report Type: Spontaneous
  Country: US (occurrence: US)
  Receive Date: 20150803
  Receipt Date: 20150803
  Transmission Date: 20151125
  Serious: No
  Sender: FDA-Public Use
  Company Number: US-ELI_LILLY_AND_COMPANY-US201005001709

PATIENT
  Age: 89 Year
  Sex: Female

DRUGS (10)
  1. PLAVIX [Concomitant]
     Active Substance: CLOPIDOGREL BISULFATE
  2. VITAMIN D [Concomitant]
     Active Substance: CHOLECALCIFEROL
  3. L-CARNITINE [Concomitant]
     Active Substance: LEVOCARNITINE
  4. NEURONTIN [Concomitant]
     Active Substance: GABAPENTIN
  5. COZAAR [Concomitant]
     Active Substance: LOSARTAN POTASSIUM
  6. DEPAKOTE [Concomitant]
     Active Substance: DIVALPROEX SODIUM
  7. NAMENDA [Concomitant]
     Active Substance: MEMANTINE HYDROCHLORIDE
  8. ZYPREXA [Suspect]
     Active Substance: OLANZAPINE
     Indication: DEMENTIA
     Dosage: 5 MG, AS NEEDED
  9. CALCIUM [Concomitant]
     Active Substance: CALCIUM
  10. ZYPREXA [Suspect]
     Active Substance: OLANZAPINE
     Dosage: 2.5 MG, AS NEEDED

REACTIONS (2)
  - Hypotension [Unknown]
  - Drug ineffective for unapproved indication [Unknown]
